FAERS Safety Report 6859957-1 (Version None)
Quarter: 2010Q3

REPORT INFORMATION
  Report Type: 
  Country: None (occurrence: None)
  Receive Date: 20100720
  Receipt Date: 20100713
  Transmission Date: 20110219
  Serious: Yes (Hospitalization, Other)
  Sender: FDA-Public Use
  Company Number: PHHY2010BR43371

PATIENT
  Sex: Female

DRUGS (6)
  1. EXELON [Suspect]
     Indication: DEMENTIA ALZHEIMER'S TYPE
     Dosage: 9 MG/ 5 CM2
     Route: 062
  2. EXELON [Suspect]
     Dosage: 18 MG/ 10 CM2
     Route: 062
  3. TEGRETOL [Concomitant]
     Indication: CONVULSION
     Dosage: 1 DF, BID
     Dates: start: 20091101
  4. PURAN T4 [Concomitant]
     Indication: HYPOTHYROIDISM
     Dosage: 1 TABLET IN THE MORNING
     Route: 048
  5. INSULIN [Concomitant]
     Indication: DIABETES MELLITUS
     Dosage: 30 UI IN MORNING, 6 UI AT NIGHT
     Route: 058
     Dates: start: 20070101
  6. ANTICOAGULANTS [Concomitant]
     Dosage: UNK

REACTIONS (11)
  - AGITATION [None]
  - BLOOD PRESSURE INCREASED [None]
  - DEMENTIA WITH LEWY BODIES [None]
  - DYSTONIA [None]
  - GASTROSTOMY [None]
  - HYPOGLYCAEMIA [None]
  - OEDEMA PERIPHERAL [None]
  - PARKINSON'S DISEASE [None]
  - SCREAMING [None]
  - THROMBOSIS [None]
  - WEIGHT DECREASED [None]
